FAERS Safety Report 22112758 (Version 1)
Quarter: 2023Q1

REPORT INFORMATION
  Report Type: Spontaneous
  Country: US (occurrence: US)
  Receive Date: 20230320
  Receipt Date: 20230320
  Transmission Date: 20230418
  Serious: Yes (Hospitalization)
  Sender: FDA-Public Use
  Company Number: US-STRIDES ARCOLAB LIMITED-2023SP004001

PATIENT
  Age: 28 Year
  Sex: Female

DRUGS (16)
  1. ETOPOSIDE [Suspect]
     Active Substance: ETOPOSIDE
     Indication: Plasmablastic lymphoma
     Dosage: 30 MILLIGRAM/SQ. METER, RECEIVED DURING CYCLE 1, CYCLICAL
     Route: 065
  2. ETOPOSIDE [Suspect]
     Active Substance: ETOPOSIDE
     Dosage: 37 MILLIGRAM/SQ. METER, RECEIVED DURING CYCLE 2,CYCLICAL
     Route: 065
  3. ETOPOSIDE [Suspect]
     Active Substance: ETOPOSIDE
     Dosage: 50 MILLIGRAM/SQ. METER, RECEIVED DURING CYCLE 3, 4 AND 5, CYCLICAL
     Route: 065
  4. ETOPOSIDE [Suspect]
     Active Substance: ETOPOSIDE
     Dosage: 40 MILLIGRAM/SQ. METER, RECEIVED DURING CYCLE 6, CYCLICAL
     Route: 065
  5. DOXORUBICIN [Suspect]
     Active Substance: DOXORUBICIN
     Indication: Plasmablastic lymphoma
     Dosage: 7 MILLIGRAM/SQ. METER, RECEIVED DURING CYCLE 1,2, 5 AND 6,CYCLICAL
     Route: 065
  6. DOXORUBICIN [Suspect]
     Active Substance: DOXORUBICIN
     Dosage: 10 MILLIGRAM/SQ. METER, RECEIVED DURING CYCLE 3 AND 4, CYCLICAL
     Route: 065
  7. METHOTREXATE [Suspect]
     Active Substance: METHOTREXATE
     Indication: Plasmablastic lymphoma
     Dosage: 3.5 GRAM PER SQUARE METRE, RECEIVED DURING CYCLE 5, CYCLICAL
     Route: 065
  8. CYCLOPHOSPHAMIDE [Suspect]
     Active Substance: CYCLOPHOSPHAMIDE
     Indication: Plasmablastic lymphoma
     Dosage: 187 MILLIGRAM/SQ. METER,RECEIVED DURING CYCLE 1, CYCLICAL
     Route: 065
  9. CYCLOPHOSPHAMIDE [Suspect]
     Active Substance: CYCLOPHOSPHAMIDE
     Dosage: 377 MILLIGRAM/SQ. METER, RECEIVED DURING CYCLE 2, CYCLICAL
     Route: 065
  10. CYCLOPHOSPHAMIDE [Suspect]
     Active Substance: CYCLOPHOSPHAMIDE
     Dosage: 400 MILLIGRAM/SQ. METER, RECEIVED DURING CYCLE 3, CYCLICAL
     Route: 065
  11. CYCLOPHOSPHAMIDE [Suspect]
     Active Substance: CYCLOPHOSPHAMIDE
     Dosage: 562 MILLIGRAM/SQ. METER, RECEIVED DURING CYCLE 4, CYCLICAL
     Route: 065
  12. CYCLOPHOSPHAMIDE [Suspect]
     Active Substance: CYCLOPHOSPHAMIDE
     Dosage: 364 MILLIGRAM/SQ. METER, RECEIVED DURING CYCLE 5, CYCLICAL
     Route: 065
  13. CYCLOPHOSPHAMIDE [Suspect]
     Active Substance: CYCLOPHOSPHAMIDE
     Dosage: 242 MILLIGRAM/SQ. METER, RECEIVED DURING CYCLE 6, CYCLICAL
     Route: 065
  14. RITUXIMAB [Suspect]
     Active Substance: RITUXIMAB
     Indication: Plasmablastic lymphoma
     Dosage: 550 MILLIGRAM, RECEIVED DURING CYCLE 3, CYCLICAL
     Route: 065
  15. DARATUMUMAB [Suspect]
     Active Substance: DARATUMUMAB
     Indication: Plasmablastic lymphoma
     Dosage: 16 MILLIGRAM/KILOGRAM, THROUGHOUT BETWEEN CYCLES 1, 2 AND 3 ON WEEKLY THROUGHOUT , CYCLICAL
     Route: 065
  16. DARATUMUMAB [Suspect]
     Active Substance: DARATUMUMAB
     Dosage: 16 MILLIGRAM/KILOGRAM, RECEIVED ON DAY 1 OF CYCLE 4 AND ON DAY 4 OF CYCLES 5 AND 6,CYCLICAL
     Route: 065

REACTIONS (4)
  - Deep vein thrombosis [Unknown]
  - Pulmonary embolism [Unknown]
  - Febrile neutropenia [Unknown]
  - Off label use [Unknown]
